FAERS Safety Report 4625641-8 (Version None)
Quarter: 2005Q1

REPORT INFORMATION
  Report Type: 
  Country: None (occurrence: None)
  Receive Date: 20050330
  Receipt Date: 20050316
  Transmission Date: 20050727
  Serious: Yes (Hospitalization)
  Sender: FDA-Public Use
  Company Number: FR_050306046

PATIENT
  Age: 74 Year
  Sex: Male
  Weight: 48 kg

DRUGS (4)
  1. ALIMTA [Suspect]
     Indication: LUNG NEOPLASM MALIGNANT
     Dosage: 850 MG OTHER
     Dates: start: 20050128
  2. PREDNISOLONE [Concomitant]
  3. VITAMIN B-12 [Concomitant]
  4. MULTI-VITAMINS [Concomitant]

REACTIONS (1)
  - DERMATITIS EXFOLIATIVE [None]
